FAERS Safety Report 19265322 (Version 2)
Quarter: 2021Q2

REPORT INFORMATION
  Report Type: Spontaneous
  Country: US (occurrence: US)
  Receive Date: 20210517
  Receipt Date: 20210517
  Transmission Date: 20210717
  Serious: Yes (Hospitalization, Other)
  Sender: FDA-Public Use
  Company Number: US-MICRO LABS LIMITED-ML2021-01493

PATIENT
  Age: 50 Year
  Sex: Male

DRUGS (3)
  1. DILTIAZEM. [Suspect]
     Active Substance: DILTIAZEM
  2. BUPROPION. [Suspect]
     Active Substance: BUPROPION
  3. VENLAFAXINE [Suspect]
     Active Substance: VENLAFAXINE HYDROCHLORIDE

REACTIONS (4)
  - Cardiogenic shock [Recovering/Resolving]
  - Multiple organ dysfunction syndrome [Recovering/Resolving]
  - Overdose [Unknown]
  - Lactic acidosis [Recovering/Resolving]
